FAERS Safety Report 7938557-6 (Version None)
Quarter: 2011Q4

REPORT INFORMATION
  Report Type: 
  Country: None (occurrence: None)
  Receive Date: 20111123
  Receipt Date: 20111122
  Transmission Date: 20120403
  Serious: Yes (Other)
  Sender: FDA-Public Use
  Company Number: JP-ABBOTT-11P-087-0874708-00

PATIENT
  Sex: Female

DRUGS (12)
  1. CARBIMAZOL [Concomitant]
     Indication: SEPSIS
  2. AMIKACIN [Concomitant]
     Indication: MEDIASTINAL ABSCESS
  3. ERYTHROCIN STEARATE [Suspect]
     Indication: RETROPERITONEAL ABSCESS
  4. ERYTHROCIN STEARATE [Suspect]
     Indication: SEPSIS
  5. IMIPENEM [Concomitant]
     Indication: MEDIASTINAL ABSCESS
  6. IMIPENEM [Concomitant]
     Indication: SEPSIS
  7. CARBIMAZOL [Concomitant]
     Indication: RETROPERITONEAL ABSCESS
  8. ERYTHROCIN STEARATE [Suspect]
     Indication: MEDIASTINAL ABSCESS
  9. IMIPENEM [Concomitant]
     Indication: RETROPERITONEAL ABSCESS
  10. AMIKACIN [Concomitant]
     Indication: RETROPERITONEAL ABSCESS
  11. CARBIMAZOL [Concomitant]
     Indication: MEDIASTINAL ABSCESS
  12. AMIKACIN [Concomitant]
     Indication: SEPSIS

REACTIONS (1)
  - HEARING IMPAIRED [None]
